FAERS Safety Report 5329651-7 (Version None)
Quarter: 2007Q1

REPORT INFORMATION
  Report Type: 
  Country: None (occurrence: None)
  Receive Date: 20070227
  Receipt Date: 20060427
  Transmission Date: 20070707
  Serious: No
  Sender: FDA-Public Use
  Company Number: 446182

PATIENT
  Age: 18 Year
  Sex: Female
  Weight: 51.3 kg

DRUGS (2)
  1. ACCUTANE [Suspect]
     Indication: ACNE
     Dosage: 30 MG DAILY ORAL
     Route: 048
     Dates: start: 20060213, end: 20060306
  2. UNSPECIFIED DRUG (GENERIC UNKNOWN) [Concomitant]

REACTIONS (1)
  - DEPRESSION [None]
